FAERS Safety Report 9916743 (Version 2)
Quarter: 2014Q1

REPORT INFORMATION
  Report Type: Spontaneous
  Country: JP (occurrence: JP)
  Receive Date: 20140221
  Receipt Date: 20140228
  Transmission Date: 20141002
  Serious: Yes (Other)
  Sender: FDA-Public Use
  Company Number: JP-UCBSA-112986

PATIENT
  Age: 40 Year
  Sex: Female

DRUGS (3)
  1. XYZAL [Suspect]
     Indication: URTICARIA CHRONIC
     Route: 048
     Dates: start: 201311
  2. THEODUR [Concomitant]
     Indication: ASTHMA
     Route: 048
  3. SYMBICORT [Concomitant]
     Indication: ASTHMA
     Route: 055

REACTIONS (2)
  - Respiratory tract infection [Unknown]
  - Pyrexia [Recovered/Resolved]
